FAERS Safety Report 14756170 (Version 1)
Quarter: 2018Q2

REPORT INFORMATION
  Report Type: Spontaneous
  Country: US (occurrence: US)
  Receive Date: 20180413
  Receipt Date: 20180413
  Transmission Date: 20180711
  Serious: No
  Sender: FDA-Public Use
  Company Number: US-BION-006766

PATIENT
  Age: 51 Year
  Sex: Female
  Weight: 78.02 kg

DRUGS (2)
  1. LEVOTHYROXINE. [Concomitant]
     Active Substance: LEVOTHYROXINE
  2. ALEVE [Suspect]
     Active Substance: NAPROXEN SODIUM
     Indication: LYMPHADENOPATHY
     Dosage: 2 IN THE MORNING AND 2 AT NIGHT
     Route: 048
     Dates: start: 20171102

REACTIONS (2)
  - Incorrect dose administered [Not Recovered/Not Resolved]
  - Product use in unapproved indication [Not Recovered/Not Resolved]

NARRATIVE: CASE EVENT DATE: 20171102
